FAERS Safety Report 25423581 (Version 1)
Quarter: 2025Q2

REPORT INFORMATION
  Report Type: Spontaneous
  Country: CN (occurrence: CN)
  Receive Date: 20250611
  Receipt Date: 20250611
  Transmission Date: 20250717
  Serious: Yes (Other)
  Sender: BAYER HEALTHCARE PHARMACEUTICALS INC.
  Company Number: CN-BAYER-2025A076844

PATIENT
  Age: 73 Year
  Sex: Female
  Weight: 52.6 kg

DRUGS (4)
  1. KERENDIA [Suspect]
     Active Substance: FINERENONE
     Indication: Diabetic nephropathy
     Dosage: 1 DF, QD
     Route: 048
     Dates: start: 20250519, end: 20250603
  2. DAPAGLIFLOZIN [Suspect]
     Active Substance: DAPAGLIFLOZIN
     Indication: Type 2 diabetes mellitus
     Dosage: 1 DF, QD
     Route: 048
     Dates: start: 20250519, end: 20250606
  3. AMLODIPINE BESYLATE AND ATORVASTATIN CALCIUM [Concomitant]
     Active Substance: AMLODIPINE BESYLATE\ATORVASTATIN CALCIUM
     Dosage: 1 DF, QD
     Route: 048
     Dates: start: 20241001, end: 20250606
  4. CLOPIDOGREL BISULFATE [Concomitant]
     Active Substance: CLOPIDOGREL BISULFATE
     Dosage: 1 DF, QD
     Route: 048
     Dates: start: 20250519, end: 20250609

REACTIONS (3)
  - Dermatitis allergic [Recovering/Resolving]
  - Urticaria [Recovering/Resolving]
  - Pruritus [None]

NARRATIVE: CASE EVENT DATE: 20250530
